FAERS Safety Report 5950476-3 (Version None)
Quarter: 2008Q4

REPORT INFORMATION
  Report Type: 
  Country: None (occurrence: None)
  Receive Date: 20081022
  Receipt Date: 20080822
  Transmission Date: 20090506
  Serious: No
  Sender: FDA-Public Use
  Company Number: ALL1-2008-02380

PATIENT
  Age: 18 Year
  Sex: Male
  Weight: 72.6 kg

DRUGS (2)
  1. VYVANSE [Suspect]
     Indication: ATTENTION DEFICIT/HYPERACTIVITY DISORDER
     Dosage: 30 MG, ORAL 50 MG, ORAL
     Route: 048
     Dates: start: 20080701, end: 20080801
  2. VYVANSE [Suspect]
     Indication: ATTENTION DEFICIT/HYPERACTIVITY DISORDER
     Dosage: 30 MG, ORAL 50 MG, ORAL
     Route: 048
     Dates: start: 20080801, end: 20080816

REACTIONS (9)
  - APATHY [None]
  - ASTHENIA [None]
  - DISTURBANCE IN ATTENTION [None]
  - DRUG INEFFECTIVE [None]
  - FATIGUE [None]
  - LOGORRHOEA [None]
  - MOOD ALTERED [None]
  - PARANOIA [None]
  - PERSONALITY CHANGE [None]
